FAERS Safety Report 7121178-5 (Version None)
Quarter: 2010Q4

REPORT INFORMATION
  Report Type: 
  Country: None (occurrence: None)
  Receive Date: 20101124
  Receipt Date: 20101110
  Transmission Date: 20110411
  Serious: Yes (Hospitalization)
  Sender: FDA-Public Use
  Company Number: PHHO2007TW20266

PATIENT
  Sex: Male
  Weight: 17.5 kg

DRUGS (1)
  1. ELIDEL [Suspect]
     Indication: DERMATITIS ATOPIC
     Dosage: APPLIED TWICE DAILY
     Route: 048
     Dates: start: 20040623, end: 20071207

REACTIONS (7)
  - APPENDICECTOMY [None]
  - APPENDICITIS [None]
  - ASCITES [None]
  - CONSTIPATION [None]
  - ESCHERICHIA INFECTION [None]
  - PSEUDOMONAS INFECTION [None]
  - UPPER RESPIRATORY TRACT INFECTION [None]
